FAERS Safety Report 24023313 (Version 1)
Quarter: 2024Q2

REPORT INFORMATION
  Report Type: Report from Study
  Country: VN (occurrence: VN)
  Receive Date: 20240627
  Receipt Date: 20240627
  Transmission Date: 20240716
  Serious: No
  Sender: FDA-Public Use
  Company Number: VN-ROCHE-3529842

PATIENT
  Age: 64 Year
  Sex: Male
  Weight: 69.0 kg

DRUGS (5)
  1. ALECTINIB [Suspect]
     Active Substance: ALECTINIB
     Indication: Non-small cell lung cancer metastatic
     Route: 048
     Dates: start: 20220803
  2. ALECTINIB [Suspect]
     Active Substance: ALECTINIB
     Route: 048
     Dates: start: 20221121
  3. CERNEVIT [Concomitant]
     Active Substance: VITAMINS
     Dosage: MEDICATION DOSE: 1 OTHER
     Route: 042
     Dates: start: 20230413, end: 20230413
  4. CERNEVIT [Concomitant]
     Active Substance: VITAMINS
     Dosage: MEDICATION DOSE: 1 AMPULE
     Route: 042
     Dates: start: 20230510, end: 20230510
  5. CERNEVIT [Concomitant]
     Active Substance: VITAMINS
     Dosage: MEDICATION DOSE :1 AMPULE
     Route: 042
     Dates: start: 20230607, end: 20230607

REACTIONS (1)
  - Diabetes mellitus [Recovering/Resolving]

NARRATIVE: CASE EVENT DATE: 20230511
